FAERS Safety Report 15463715 (Version 2)
Quarter: 2019Q2

REPORT INFORMATION
  Report Type: Spontaneous
  Country: US (occurrence: US)
  Receive Date: 20181004
  Receipt Date: 20190513
  Transmission Date: 20190711
  Serious: No
  Sender: FDA-Public Use
  Company Number: US-ELI_LILLY_AND_COMPANY-US201810001855

PATIENT
  Sex: Female

DRUGS (6)
  1. LANTUS [Concomitant]
     Active Substance: INSULIN GLARGINE
     Indication: TYPE 1 DIABETES MELLITUS
     Dosage: 1 U, DAILY
  2. HUMALOG JUNIOR KWIKPEN [Suspect]
     Active Substance: INSULIN LISPRO
     Indication: TYPE 1 DIABETES MELLITUS
     Dosage: UNK UNK, PRN
     Route: 058
     Dates: start: 20180406
  3. HUMALOG JUNIOR KWIKPEN [Suspect]
     Active Substance: INSULIN LISPRO
     Dosage: UNK UNK, UNKNOWN
     Route: 058
  4. HUMALOG JUNIOR KWIKPEN [Suspect]
     Active Substance: INSULIN LISPRO
     Dosage: UNK UNK, UNKNOWN
  5. HUMALOG JUNIOR KWIKPEN [Suspect]
     Active Substance: INSULIN LISPRO
     Dosage: UNK UNK, UNKNOWN
  6. LANTUS [Concomitant]
     Active Substance: INSULIN GLARGINE
     Dosage: 3 INTERNATIONAL UNIT, EACH EVENING (AT BED TIME)

REACTIONS (5)
  - Injection site pain [Unknown]
  - Product storage error [Unknown]
  - Blood glucose increased [Recovered/Resolved]
  - Blood glucose increased [Recovering/Resolving]
  - Blood glucose decreased [Unknown]

NARRATIVE: CASE EVENT DATE: 201807
